FAERS Safety Report 7460883-8 (Version None)
Quarter: 2011Q2

REPORT INFORMATION
  Report Type: 
  Country: None (occurrence: None)
  Receive Date: 20110505
  Receipt Date: 20110503
  Transmission Date: 20111010
  Serious: Yes (Other)
  Sender: FDA-Public Use
  Company Number: GB-GILEAD-E2B_00001249

PATIENT
  Age: 28 Year
  Sex: Male

DRUGS (9)
  1. TRUVADA [Suspect]
     Dates: start: 20051201, end: 20060301
  2. TRUVADA [Suspect]
     Indication: HIV INFECTION
     Dosage: NOV-DEC05,DEC05-MAR06,MAR06-MAY06,NOV06-JAN07,NOV08,DEC08-MAR09
     Dates: start: 20051101, end: 20051201
  3. VALGANCICLOVIR [Concomitant]
     Indication: CYTOMEGALOVIRUS INFECTION
  4. EFAVIRENZ [Suspect]
     Indication: HIV INFECTION
     Dosage: NOV-DEC05
     Dates: start: 20051101, end: 20051201
  5. DAPSONE [Suspect]
  6. TRUVADA [Suspect]
     Dates: start: 20060301, end: 20060501
  7. TRUVADA [Suspect]
     Dates: start: 20081201, end: 20090301
  8. TRUVADA [Suspect]
     Dates: start: 20061101, end: 20070101
  9. TRUVADA [Suspect]
     Dates: start: 20081101

REACTIONS (1)
  - MENTAL DISORDER [None]
